FAERS Safety Report 17592421 (Version 1)
Quarter: 2020Q1

REPORT INFORMATION
  Report Type: Report from Study
  Country: SE (occurrence: SE)
  Receive Date: 20200327
  Receipt Date: 20200327
  Transmission Date: 20200409
  Serious: Yes (Hospitalization)
  Sender: FDA-Public Use
  Company Number: SE-ROCHE-2570354

PATIENT
  Age: 70 Year
  Sex: Female
  Weight: 67 kg

DRUGS (9)
  1. AMIMOX [Concomitant]
     Active Substance: AMOXICILLIN
     Route: 048
     Dates: start: 20150224
  2. CAPECITABINE. [Suspect]
     Active Substance: CAPECITABINE
     Indication: DUCTAL ADENOCARCINOMA OF PANCREAS
     Dosage: CAPECITABINE IS ADMINISTERED ORALLY FOR 21 DAYS FOLLOWED BY 7 DAYS^ REST.
     Route: 048
     Dates: start: 20150129
  3. NOVOMIX [Concomitant]
     Active Substance: INSULIN ASPART
  4. TIENAM [Concomitant]
     Active Substance: CILASTATIN SODIUM\IMIPENEM
     Route: 041
     Dates: start: 20150216, end: 20150324
  5. NOVORAPID [Concomitant]
     Active Substance: INSULIN ASPART
  6. ESOMEPRAZOLE. [Concomitant]
     Active Substance: ESOMEPRAZOLE MAGNESIUM
     Route: 048
     Dates: start: 20150304
  7. GEMCITABINE. [Suspect]
     Active Substance: GEMCITABINE
     Indication: DUCTAL ADENOCARCINOMA OF PANCREAS
     Dosage: 1000MG/M2 GIVEN ONCE A WEEK FOR THREE  WEEKS FOLLOWED BY A REST WEEK
     Route: 041
     Dates: start: 20150129
  8. CIPROFLOXACIN. [Concomitant]
     Active Substance: CIPROFLOXACIN
     Route: 048
     Dates: start: 20150224, end: 20150317
  9. ESOMEPRAZOLE. [Concomitant]
     Active Substance: ESOMEPRAZOLE MAGNESIUM
     Route: 041
     Dates: start: 20150216, end: 20150324

REACTIONS (1)
  - Chemotherapy toxicity attenuation [Recovered/Resolved]

NARRATIVE: CASE EVENT DATE: 20150130
